FAERS Safety Report 6848741-0 (Version None)
Quarter: 2010Q3

REPORT INFORMATION
  Report Type: 
  Country: None (occurrence: None)
  Receive Date: 20100716
  Receipt Date: 20070907
  Transmission Date: 20110219
  Serious: No
  Sender: FDA-Public Use
  Company Number: US-PFIZER INC-2007075353

PATIENT
  Sex: Female
  Weight: 104.5 kg

DRUGS (8)
  1. CHANTIX [Suspect]
     Indication: SMOKING CESSATION THERAPY
     Dates: start: 20070829
  2. GLUCOPHAGE [Concomitant]
     Indication: TYPE 2 DIABETES MELLITUS
  3. GLUCOPHAGE [Concomitant]
     Indication: INSULIN RESISTANCE
  4. KLONOPIN [Concomitant]
     Indication: DEPRESSION
  5. KLONOPIN [Concomitant]
     Indication: ANXIETY
  6. TRAZODONE HYDROCHLORIDE [Concomitant]
  7. NAPROXEN [Concomitant]
  8. SKELAXIN [Concomitant]

REACTIONS (8)
  - ANXIETY [None]
  - CONSTIPATION [None]
  - CRYING [None]
  - HEART RATE INCREASED [None]
  - HYPERHIDROSIS [None]
  - INSOMNIA [None]
  - NAUSEA [None]
  - NIGHTMARE [None]
